FAERS Safety Report 8981266 (Version 2)
Quarter: 2013Q1

REPORT INFORMATION
  Report Type: Spontaneous
  Country: US (occurrence: US)
  Receive Date: 20121221
  Receipt Date: 20130125
  Transmission Date: 20140127
  Serious: Yes (Death, Other)
  Sender: FDA-Public Use
  Company Number: US-PFIZER INC-2012320794

PATIENT
  Age: 81 Year
  Sex: Male
  Weight: 79 kg

DRUGS (3)
  1. CELEBREX [Suspect]
     Indication: ARTHRALGIA
     Dosage: 200 MG, 2X/DAY
     Route: 048
  2. TOVIAZ [Suspect]
     Dosage: 8 MG, 1X/DAY
     Route: 048
  3. LIPITOR [Suspect]
     Indication: BLOOD CHOLESTEROL INCREASED
     Dosage: 40 MG, 1X/DAY
     Route: 048

REACTIONS (1)
  - Death [Fatal]
